FAERS Safety Report 20187735 (Version 1)
Quarter: 2021Q4

REPORT INFORMATION
  Report Type: Spontaneous
  Country: US (occurrence: US)
  Receive Date: 20211215
  Receipt Date: 20211215
  Transmission Date: 20220303
  Serious: Yes (Hospitalization, Other)
  Sender: FDA-Public Use
  Company Number: US-PURDUE-USA-2020-0158840

PATIENT
  Sex: Male

DRUGS (2)
  1. HYDROCODONE BITARTRATE [Suspect]
     Active Substance: HYDROCODONE BITARTRATE
     Indication: Pain
     Dosage: 10 MG, QID
     Route: 048
     Dates: start: 1990
  2. CORTISONE [Suspect]
     Active Substance: CORTISONE
     Indication: Pain
     Dosage: UNK, PRN, INJECTION
     Route: 065

REACTIONS (5)
  - Dependence [Unknown]
  - Pain [Unknown]
  - Gait disturbance [Unknown]
  - General physical health deterioration [Unknown]
  - Headache [Unknown]
